FAERS Safety Report 8273915-4 (Version None)
Quarter: 2012Q2

REPORT INFORMATION
  Report Type: 
  Country: None (occurrence: None)
  Receive Date: 20120411
  Receipt Date: 20120330
  Transmission Date: 20120825
  Serious: Yes (Other)
  Sender: FDA-Public Use
  Company Number: US-ELI_LILLY_AND_COMPANY-US201203001127

PATIENT
  Sex: Female

DRUGS (1)
  1. FORTEO [Suspect]
     Indication: OSTEOPOROSIS
     Dosage: 20 UG, QD
     Route: 058

REACTIONS (15)
  - GAIT DISTURBANCE [None]
  - HYPERSENSITIVITY [None]
  - HYPERHIDROSIS [None]
  - MUSCLE SPASMS [None]
  - FATIGUE [None]
  - AORTIC ANEURYSM [None]
  - HYPERTENSION [None]
  - INTENTIONAL DRUG MISUSE [None]
  - FEELING ABNORMAL [None]
  - PAIN [None]
  - ASTHENIA [None]
  - VISUAL IMPAIRMENT [None]
  - NECK PAIN [None]
  - HEADACHE [None]
  - DIZZINESS [None]
